FAERS Safety Report 20688780 (Version 1)
Quarter: 2022Q2

REPORT INFORMATION
  Report Type: Spontaneous
  Country: US (occurrence: US)
  Receive Date: 20220408
  Receipt Date: 20220408
  Transmission Date: 20220720
  Serious: No
  Sender: FDA-Public Use
  Company Number: US-ORGANON-O2204USA000581

PATIENT
  Sex: Female

DRUGS (1)
  1. ASMANEX [Suspect]
     Active Substance: MOMETASONE FUROATE
     Indication: Bronchitis chronic
     Dosage: 1 PUFF ONCE A DAY

REACTIONS (5)
  - Sinusitis [Unknown]
  - Device malfunction [Unknown]
  - Poor quality device used [Unknown]
  - Product use complaint [Unknown]
  - Product use in unapproved indication [Unknown]
